FAERS Safety Report 6921971-5 (Version None)
Quarter: 2010Q3

REPORT INFORMATION
  Report Type: 
  Country: None (occurrence: None)
  Receive Date: 20100812
  Receipt Date: 20100803
  Transmission Date: 20110219
  Serious: Yes (Other)
  Sender: FDA-Public Use
  Company Number: US-JNJCH-2010018063

PATIENT
  Age: 48 Year
  Sex: Female
  Weight: 77.1 kg

DRUGS (1)
  1. LISTERINE WHITENING QUICK DISSOLVING STRIPS [Suspect]
     Indication: DENTAL CARE
     Dosage: TEXT:AS DIRECTED TWICE A DAY
     Route: 048
     Dates: start: 20100731, end: 20100802

REACTIONS (5)
  - BURNING SENSATION [None]
  - CHAPPED LIPS [None]
  - CHEILITIS [None]
  - LIP BLISTER [None]
  - LIP PAIN [None]
